FAERS Safety Report 20329668 (Version 2)
Quarter: 2022Q1

REPORT INFORMATION
  Report Type: Report from Study
  Country: None (occurrence: GB)
  Receive Date: 20220112
  Receipt Date: 20220222
  Transmission Date: 20220423
  Serious: Yes (Hospitalization, Other)
  Sender: FDA-Public Use
  Company Number: GB-AKCEA THERAPEUTICS, INC.-2021IS001564

PATIENT
  Age: 78 Year
  Sex: Male

DRUGS (2)
  1. TEGSEDI [Suspect]
     Active Substance: INOTERSEN SODIUM
     Indication: Hereditary neuropathic amyloidosis
     Route: 058
     Dates: start: 202004
  2. DEVICE [Suspect]
     Active Substance: DEVICE

REACTIONS (14)
  - Loss of consciousness [Unknown]
  - Syncope [Unknown]
  - Amnesia [Unknown]
  - Respiratory arrest [Unknown]
  - Pulse absent [Unknown]
  - Mouth haemorrhage [Unknown]
  - Wound haemorrhage [Unknown]
  - Wound [Unknown]
  - Asthenia [Unknown]
  - Malaise [Unknown]
  - Diarrhoea [Unknown]
  - Skin cancer [Unknown]
  - Sensory loss [Unknown]
  - Grip strength decreased [Unknown]

NARRATIVE: CASE EVENT DATE: 20210713
